FAERS Safety Report 9665697 (Version 2)
Quarter: 2013Q4

REPORT INFORMATION
  Report Type: Spontaneous
  Country: US (occurrence: US)
  Receive Date: 20131104
  Receipt Date: 20131104
  Transmission Date: 20140711
  Serious: Yes (Death, Other)
  Sender: FDA-Public Use
  Company Number: PHEH2013US012940

PATIENT
  Sex: Male

DRUGS (2)
  1. EXELON PATCH [Suspect]
     Dosage: 9.5 MG, UNK
     Route: 062
  2. LIPITOR [Suspect]

REACTIONS (10)
  - Death [Fatal]
  - Bacterial infection [Unknown]
  - Pneumonia [Unknown]
  - Urinary tract infection [Unknown]
  - Abnormal behaviour [Unknown]
  - Distractibility [Unknown]
  - Malnutrition [Unknown]
  - Amnesia [Unknown]
  - Aggression [Unknown]
  - Dehydration [Unknown]
